FAERS Safety Report 20629865 (Version 1)
Quarter: 2022Q1

REPORT INFORMATION
  Report Type: Report from Study
  Country: BE (occurrence: BE)
  Receive Date: 20220324
  Receipt Date: 20220324
  Transmission Date: 20220424
  Serious: Yes (Other)
  Sender: FDA-Public Use
  Company Number: BE-002147023-NVSC2022BE057134

PATIENT
  Age: 25 Year
  Sex: Female

DRUGS (4)
  1. AIMOVIG [Suspect]
     Active Substance: ERENUMAB-AOOE
     Indication: Migraine
     Dosage: 140 MILLIGRAM, QMO
     Route: 065
     Dates: start: 202108, end: 202111
  2. AIMOVIG [Suspect]
     Active Substance: ERENUMAB-AOOE
     Dosage: 140 MILLIGRAM, QMO
     Route: 065
     Dates: start: 202201, end: 20220205
  3. CATAFLAM [DICLOFENAC RESINATE] [Concomitant]
     Indication: Pain
     Dosage: 1 DOSAGE FORM, AS NECESSARY (PRN (STARTED 3.5 YEARS AGO))
     Route: 048
  4. ALMOTRIPTAN MALATE [Concomitant]
     Active Substance: ALMOTRIPTAN MALATE
     Indication: Pain
     Dosage: 1 DOSAGE FORM ( PRN (STARTED 3.5 YEARS AGO))
     Route: 048

REACTIONS (3)
  - Migraine [Recovered/Resolved]
  - Product dose omission issue [Unknown]
  - Constipation [Not Recovered/Not Resolved]

NARRATIVE: CASE EVENT DATE: 20210801
